FAERS Safety Report 23069960 (Version 3)
Quarter: 2023Q4

REPORT INFORMATION
  Report Type: Report from Study
  Country: US (occurrence: US)
  Receive Date: 20231016
  Receipt Date: 20231031
  Transmission Date: 20240109
  Serious: Yes (Hospitalization)
  Sender: FDA-Public Use
  Company Number: US-ALNYLAM PHARMACEUTICALS, INC.-ALN-2023-005357

PATIENT

DRUGS (2)
  1. AMVUTTRA [Suspect]
     Active Substance: VUTRISIRAN
     Indication: Hereditary neuropathic amyloidosis
     Dosage: 25 MILLIGRAM, Q3M
     Route: 058
     Dates: start: 20230411
  2. AMVUTTRA [Suspect]
     Active Substance: VUTRISIRAN
     Dosage: UNK UNK, Q3M
     Route: 058
     Dates: start: 20230711

REACTIONS (3)
  - Supraventricular tachycardia [Unknown]
  - Pulmonary oedema [Unknown]
  - Therapy interrupted [Unknown]
